FAERS Safety Report 8506457-9 (Version None)
Quarter: 2012Q3

REPORT INFORMATION
  Report Type: 
  Country: None (occurrence: None)
  Receive Date: 20120712
  Receipt Date: 20120710
  Transmission Date: 20120928
  Serious: Yes (Hospitalization)
  Sender: FDA-Public Use
  Company Number: US-ROCHE-GNE309791

PATIENT
  Sex: Female
  Weight: 93.978 kg

DRUGS (11)
  1. OMALIZUMAB [Suspect]
     Dates: start: 20110917
  2. SYMBICORT [Concomitant]
     Indication: ASTHMA
     Dosage: UNK
  3. VITAMIN AND MINERAL PRENATAL SUPPLEMENT W/ FOLIC ACID CAP [Concomitant]
     Indication: PREGNANCY
     Dosage: UNK
  4. FLONASE [Concomitant]
     Indication: HYPERSENSITIVITY
  5. RHINOCORT [Concomitant]
     Indication: HYPERSENSITIVITY
     Dosage: UNK
  6. SINGULAIR [Concomitant]
     Indication: ASTHMA
  7. OMALIZUMAB [Suspect]
     Indication: ASTHMA
     Dosage: 150 MG, Q4W
     Route: 058
     Dates: start: 20100320
  8. IRON SUPPLEMENT [Concomitant]
     Indication: PREGNANCY
     Dosage: UNK
  9. LOHIST NOS [Concomitant]
     Indication: HYPERSENSITIVITY
  10. ZYRTEC [Concomitant]
     Indication: HYPERSENSITIVITY
     Dosage: UNK
  11. ACETAMINOPHEN [Concomitant]
     Indication: HEADACHE

REACTIONS (8)
  - PREGNANCY [None]
  - MATERNAL EXPOSURE DURING PREGNANCY [None]
  - UPPER RESPIRATORY TRACT INFECTION [None]
  - PRE-ECLAMPSIA [None]
  - CAESAREAN SECTION [None]
  - PROCEDURAL HYPOTENSION [None]
  - GESTATIONAL HYPERTENSION [None]
  - PREMATURE DELIVERY [None]
